FAERS Safety Report 23935432 (Version 5)
Quarter: 2024Q3

REPORT INFORMATION
  Report Type: Spontaneous
  Country: US (occurrence: US)
  Receive Date: 20240604
  Receipt Date: 20240926
  Transmission Date: 20241017
  Serious: Yes (Other)
  Sender: AMGEN
  Company Number: US-PFIZER INC-PV202400072280

PATIENT
  Age: 63 Year
  Sex: Female
  Weight: 68.04 kg

DRUGS (1)
  1. ENBREL [Suspect]
     Active Substance: ETANERCEPT
     Indication: Ankylosing spondylitis
     Dosage: UNKNOWN DOSE ONCE A WEEK BY HER STOMACH
     Route: 065
     Dates: start: 2015, end: 2018

REACTIONS (2)
  - Condition aggravated [Unknown]
  - Spinal disorder [Unknown]
